FAERS Safety Report 21348158 (Version 1)
Quarter: 2022Q3

REPORT INFORMATION
  Report Type: Spontaneous
  Country: FR (occurrence: FR)
  Receive Date: 20220919
  Receipt Date: 20220919
  Transmission Date: 20221026
  Serious: Yes (Hospitalization)
  Sender: FDA-Public Use
  Company Number: FR-NOVARTISPH-NVSC2022FR203124

PATIENT
  Age: 19 Year
  Sex: Male
  Weight: 26.4 kg

DRUGS (8)
  1. PANTOPRAZOLE [Suspect]
     Active Substance: PANTOPRAZOLE
     Indication: Gastrooesophageal reflux disease
     Dosage: 40 MG, QD (40 MG, 1X/DAY)
     Route: 048
     Dates: start: 202011
  2. MELATONIN [Suspect]
     Active Substance: MELATONIN
     Indication: Sleep disorder
     Dosage: 3 MG, QD (3 MG, 1X/DAY)
     Route: 048
     Dates: start: 201911
  3. CALCIUM PHOSPHATE, DIBASIC, ANHYDROUS\MAGNESIUM GLYCEROPHOSPHATE\PHOSP [Suspect]
     Active Substance: CALCIUM PHOSPHATE, DIBASIC, ANHYDROUS\MAGNESIUM GLYCEROPHOSPHATE\PHOSPHORIC ACID\SODIUM PHOSPHATE, D
     Indication: Hypophosphataemic osteomalacia
     Dosage: 591 MG CYCLICAL (EVERY 3 DAYS)
     Route: 048
     Dates: start: 202007
  4. RIVOTRIL [Suspect]
     Active Substance: CLONAZEPAM
     Indication: Epilepsy
     Dosage: 0.6 MG, QD (0.6 MG, 1X/DAY)
     Route: 048
     Dates: start: 201401
  5. BACLOFEN [Suspect]
     Active Substance: BACLOFEN
     Indication: Muscle spasms
     Dosage: 20 MG, QD (20 MG, 1X/DAY)
     Route: 048
     Dates: start: 201401
  6. SCOPOLAMINE [Suspect]
     Active Substance: SCOPOLAMINE
     Indication: Upper respiratory tract congestion
     Dosage: 1 MG/72 HOURS
     Route: 062
     Dates: start: 201401
  7. ARTANE [Suspect]
     Active Substance: TRIHEXYPHENIDYL HYDROCHLORIDE
     Indication: Dystonia
     Dosage: 3 MG, QD (3 MG, 1X/DAY)
     Route: 048
     Dates: start: 201910
  8. POLYETHYLENE GLYCOL 4000\POTASSIUM CHLORIDE\SODIUM BICARBONATE\SODIUM [Concomitant]
     Active Substance: POLYETHYLENE GLYCOL 4000\POTASSIUM CHLORIDE\SODIUM BICARBONATE\SODIUM CHLORIDE\SODIUM SULFATE
     Indication: Product used for unknown indication
     Dosage: UNK
     Route: 065

REACTIONS (4)
  - Oxygen saturation decreased [Recovered/Resolved]
  - Hypernatraemia [Recovered/Resolved]
  - Vomiting [Recovered/Resolved]
  - Nausea [Recovered/Resolved]

NARRATIVE: CASE EVENT DATE: 20210101
